FAERS Safety Report 7461574-X (Version None)
Quarter: 2011Q2

REPORT INFORMATION
  Report Type: 
  Country: None (occurrence: None)
  Receive Date: 20110427
  Receipt Date: 20110412
  Transmission Date: 20111010
  Serious: Yes (Hospitalization, Disabling, Other)
  Sender: FDA-Public Use
  Company Number: 2011MA004177

PATIENT
  Sex: Female

DRUGS (1)
  1. METOCLOPRAMIDE [Suspect]

REACTIONS (22)
  - DEFORMITY [None]
  - RESTLESS LEGS SYNDROME [None]
  - NERVOUS SYSTEM DISORDER [None]
  - PAIN [None]
  - VISUAL IMPAIRMENT [None]
  - SUICIDAL IDEATION [None]
  - AKATHISIA [None]
  - ACTIVITIES OF DAILY LIVING IMPAIRED [None]
  - TARDIVE DYSKINESIA [None]
  - ECONOMIC PROBLEM [None]
  - NEUROPATHY PERIPHERAL [None]
  - DEPRESSION [None]
  - MULTIPLE INJURIES [None]
  - QUALITY OF LIFE DECREASED [None]
  - TREMOR [None]
  - PARKINSON'S DISEASE [None]
  - FAMILY STRESS [None]
  - METABOLIC DISORDER [None]
  - INCORRECT DRUG ADMINISTRATION DURATION [None]
  - EXTRAPYRAMIDAL DISORDER [None]
  - MENTAL DISORDER [None]
  - DYSKINESIA [None]
